FAERS Safety Report 6190276-5 (Version None)
Quarter: 2009Q2

REPORT INFORMATION
  Report Type: 
  Country: None (occurrence: None)
  Receive Date: 20090514
  Receipt Date: 20090507
  Transmission Date: 20091009
  Serious: Yes (Other)
  Sender: FDA-Public Use
  Company Number: JP-BRISTOL-MYERS SQUIBB COMPANY-14615280

PATIENT
  Age: 70 Year
  Sex: Male

DRUGS (3)
  1. CISPLATIN [Suspect]
     Indication: BONE SARCOMA
     Route: 013
  2. ETOPOSIDE [Suspect]
     Indication: BONE SARCOMA
     Route: 042
  3. IFOSFAMIDE [Suspect]
     Indication: BONE SARCOMA
     Dosage: 1 DF = 2 G/M2, GIVEN AS AN INFUSION FOR 5 DAYS AND REPEATED AFTER 1 MONTH

REACTIONS (3)
  - BLOOD PRESSURE INCREASED [None]
  - HYPOMAGNESAEMIA [None]
  - REVERSIBLE POSTERIOR LEUKOENCEPHALOPATHY SYNDROME [None]
